FAERS Safety Report 20683934 (Version 3)
Quarter: 2022Q4

REPORT INFORMATION
  Report Type: Other
  Country: CA (occurrence: CA)
  Receive Date: 20220407
  Receipt Date: 20221101
  Transmission Date: 20230113
  Serious: Yes (Other)
  Sender: FDA-Public Use
  Company Number: CA-PFIZER INC-202200505793

PATIENT
  Age: 77 Year
  Sex: Male

DRUGS (41)
  1. PROPRANOLOL HYDROCHLORIDE [Suspect]
     Active Substance: PROPRANOLOL HYDROCHLORIDE
     Indication: Resting tremor
     Dosage: UNK
     Route: 065
  2. PROPRANOLOL HYDROCHLORIDE [Suspect]
     Active Substance: PROPRANOLOL HYDROCHLORIDE
     Indication: Parkinsonian rest tremor
  3. PROPRANOLOL HYDROCHLORIDE [Suspect]
     Active Substance: PROPRANOLOL HYDROCHLORIDE
     Indication: Parkinson^s disease
  4. PROPRANOLOL HYDROCHLORIDE [Suspect]
     Active Substance: PROPRANOLOL HYDROCHLORIDE
     Indication: Head titubation
  5. GABAPENTIN [Suspect]
     Active Substance: GABAPENTIN
     Indication: Resting tremor
     Dosage: UNK
     Route: 065
  6. GABAPENTIN [Suspect]
     Active Substance: GABAPENTIN
     Indication: Parkinsonian rest tremor
  7. GABAPENTIN [Suspect]
     Active Substance: GABAPENTIN
     Indication: Parkinson^s disease
  8. GABAPENTIN [Suspect]
     Active Substance: GABAPENTIN
     Indication: Head titubation
  9. CARBIDOPA\LEVODOPA [Suspect]
     Active Substance: CARBIDOPA\LEVODOPA
     Indication: Tremor
     Dosage: UNK
     Route: 065
  10. CARBIDOPA\LEVODOPA [Suspect]
     Active Substance: CARBIDOPA\LEVODOPA
     Indication: Dysphonia
  11. PRAMIPEXOLE [Suspect]
     Active Substance: PRAMIPEXOLE
     Indication: Resting tremor
     Dosage: 1 MG, 3X/DAY
     Route: 065
  12. PRAMIPEXOLE [Suspect]
     Active Substance: PRAMIPEXOLE
     Indication: Parkinsonian rest tremor
  13. PRAMIPEXOLE [Suspect]
     Active Substance: PRAMIPEXOLE
     Indication: Parkinson^s disease
  14. PRAMIPEXOLE [Suspect]
     Active Substance: PRAMIPEXOLE
     Indication: Head titubation
  15. PRIMIDONE [Suspect]
     Active Substance: PRIMIDONE
     Indication: Resting tremor
     Dosage: UNK
     Route: 065
  16. PRIMIDONE [Suspect]
     Active Substance: PRIMIDONE
     Indication: Parkinsonian rest tremor
  17. PRIMIDONE [Suspect]
     Active Substance: PRIMIDONE
     Indication: Parkinson^s disease
  18. PRIMIDONE [Suspect]
     Active Substance: PRIMIDONE
     Indication: Head titubation
  19. ROPINIROLE HYDROCHLORIDE [Suspect]
     Active Substance: ROPINIROLE HYDROCHLORIDE
     Indication: Resting tremor
     Dosage: UNK
     Route: 065
  20. ROPINIROLE HYDROCHLORIDE [Suspect]
     Active Substance: ROPINIROLE HYDROCHLORIDE
     Indication: Parkinsonian rest tremor
  21. ROPINIROLE HYDROCHLORIDE [Suspect]
     Active Substance: ROPINIROLE HYDROCHLORIDE
     Indication: Parkinson^s disease
  22. ROPINIROLE HYDROCHLORIDE [Suspect]
     Active Substance: ROPINIROLE HYDROCHLORIDE
     Indication: Head titubation
  23. SELEGILINE [Suspect]
     Active Substance: SELEGILINE
     Indication: Tremor
     Dosage: UNK
     Route: 065
  24. SELEGILINE [Suspect]
     Active Substance: SELEGILINE
     Indication: Dysphonia
  25. AMANTADINE [Suspect]
     Active Substance: AMANTADINE
     Indication: Resting tremor
     Dosage: 100 MILLIGRAM, BID
     Route: 065
  26. AMANTADINE [Suspect]
     Active Substance: AMANTADINE
     Indication: Parkinsonian rest tremor
     Dosage: 200 MILLIGRAM, QD
     Route: 065
  27. AMANTADINE [Suspect]
     Active Substance: AMANTADINE
     Indication: Parkinson^s disease
     Dosage: 100 MILLIGRAM, BID
     Route: 065
  28. AMANTADINE [Suspect]
     Active Substance: AMANTADINE
     Indication: Head titubation
     Dosage: 100 MILLIGRAM, QD
     Route: 065
  29. BENSERAZIDE HYDROCHLORIDE\LEVODOPA [Suspect]
     Active Substance: BENSERAZIDE HYDROCHLORIDE\LEVODOPA
     Indication: Resting tremor
     Dosage: UNK UNK, 3X/DAY
     Route: 065
  30. BENSERAZIDE HYDROCHLORIDE\LEVODOPA [Suspect]
     Active Substance: BENSERAZIDE HYDROCHLORIDE\LEVODOPA
     Indication: Parkinson^s disease
     Dosage: UNK UNK, TID
     Route: 065
  31. CLONAZEPAM [Suspect]
     Active Substance: CLONAZEPAM
     Indication: Parkinsonian rest tremor
     Dosage: UNK
     Route: 065
  32. CLONAZEPAM [Suspect]
     Active Substance: CLONAZEPAM
     Indication: Parkinson^s disease
  33. CLONAZEPAM [Suspect]
     Active Substance: CLONAZEPAM
     Indication: Head titubation
  34. ETHOPROPAZINE [Concomitant]
     Active Substance: ETHOPROPAZINE
     Indication: Resting tremor
     Dosage: UNK
     Route: 065
  35. ETHOPROPAZINE [Concomitant]
     Active Substance: ETHOPROPAZINE
     Indication: Parkinsonian rest tremor
  36. ETHOPROPAZINE [Concomitant]
     Active Substance: ETHOPROPAZINE
     Indication: Parkinson^s disease
  37. ETHOPROPAZINE [Concomitant]
     Active Substance: ETHOPROPAZINE
     Indication: Head titubation
  38. TRIHEXYPHENIDYL [Concomitant]
     Active Substance: TRIHEXYPHENIDYL
     Indication: Resting tremor
     Dosage: 2 MG, 3X/DAY
     Route: 065
  39. TRIHEXYPHENIDYL [Concomitant]
     Active Substance: TRIHEXYPHENIDYL
     Indication: Parkinsonian rest tremor
  40. TRIHEXYPHENIDYL [Concomitant]
     Active Substance: TRIHEXYPHENIDYL
     Indication: Parkinson^s disease
  41. TRIHEXYPHENIDYL [Concomitant]
     Active Substance: TRIHEXYPHENIDYL
     Indication: Head titubation

REACTIONS (6)
  - Dizziness [Unknown]
  - Drug ineffective [Unknown]
  - Hallucination [Unknown]
  - Somnolence [Unknown]
  - Oedema peripheral [Unknown]
  - Off label use [Unknown]
